FAERS Safety Report 9241282 (Version 1)
Quarter: 2013Q2

REPORT INFORMATION
  Report Type: Spontaneous
  Country: ES (occurrence: ES)
  Receive Date: 20130419
  Receipt Date: 20130419
  Transmission Date: 20140414
  Serious: Yes (Hospitalization)
  Sender: FDA-Public Use
  Company Number: ES-MYLANLABS-2013S1007807

PATIENT
  Age: 74 Year
  Sex: Male

DRUGS (4)
  1. AMIODARONE [Suspect]
     Indication: ATRIAL FIBRILLATION
     Route: 065
  2. ACENOCOUMAROL [Suspect]
     Indication: ATRIAL FIBRILLATION
     Route: 065
  3. ASPIRIN [Concomitant]
     Indication: ATRIAL FIBRILLATION
     Route: 065
  4. BISOPROLOL [Concomitant]
     Indication: ATRIAL FIBRILLATION
     Route: 065

REACTIONS (5)
  - Pulmonary alveolar haemorrhage [Recovered/Resolved]
  - Hypocoagulable state [Recovered/Resolved]
  - Anaemia [Unknown]
  - Respiratory failure [Unknown]
  - Toxicity to various agents [Unknown]
